FAERS Safety Report 24315091 (Version 1)
Quarter: 2024Q3

REPORT INFORMATION
  Report Type: Spontaneous
  Country: US (occurrence: US)
  Receive Date: 20240913
  Receipt Date: 20240913
  Transmission Date: 20241016
  Serious: Yes (Death)
  Sender: CHEPLAPHARM
  Company Number: US-ROCHE-10000072697

PATIENT
  Age: 53 Year
  Sex: Male

DRUGS (6)
  1. CAPECITABINE [Suspect]
     Active Substance: CAPECITABINE
     Indication: Colorectal cancer metastatic
  2. CAPECITABINE [Suspect]
     Active Substance: CAPECITABINE
     Indication: Nausea
  3. CAPECITABINE [Suspect]
     Active Substance: CAPECITABINE
     Indication: Vomiting
  4. NEXAVAR [Suspect]
     Active Substance: SORAFENIB
     Indication: Nausea
  5. NEXAVAR [Suspect]
     Active Substance: SORAFENIB
     Indication: Vomiting
  6. NEXAVAR [Suspect]
     Active Substance: SORAFENIB
     Indication: Colorectal cancer metastatic

REACTIONS (12)
  - Failure to thrive [Fatal]
  - Fluid intake reduced [Fatal]
  - Anaemia [Fatal]
  - Dysphagia [Fatal]
  - Decreased appetite [Fatal]
  - Hypokalaemia [Fatal]
  - Confusional state [Fatal]
  - Deep vein thrombosis [Fatal]
  - Fatigue [Fatal]
  - Pain [Fatal]
  - Agitation [Fatal]
  - Asthenia [Fatal]
